FAERS Safety Report 7023123-X (Version None)
Quarter: 2010Q3

REPORT INFORMATION
  Report Type: 
  Country: None (occurrence: None)
  Receive Date: 20100930
  Receipt Date: 20100921
  Transmission Date: 20110219
  Serious: Yes (Other)
  Sender: FDA-Public Use
  Company Number: CHPA2010BE09471

PATIENT
  Sex: Female

DRUGS (2)
  1. NIOCITRAN (NCH) [Suspect]
     Indication: RHINITIS
     Dosage: 2 SACHETS DAILY
     Route: 048
     Dates: start: 20100201, end: 20100201
  2. NIOCITRAN (NCH) [Suspect]
     Dosage: UNK, UNK
     Route: 048

REACTIONS (4)
  - COMPLEMENT FACTOR C3 DECREASED [None]
  - FACE OEDEMA [None]
  - HYPERSENSITIVITY [None]
  - VITAMIN D DECREASED [None]
